FAERS Safety Report 17977511 (Version 3)
Quarter: 2020Q3

REPORT INFORMATION
  Report Type: Report from Study
  Country: US (occurrence: US)
  Receive Date: 20200703
  Receipt Date: 20200721
  Transmission Date: 20201103
  Serious: No
  Sender: FDA-Public Use
  Company Number: US-ALLERGAN-2024790US

PATIENT
  Age: 30 Year
  Sex: Male
  Weight: 121 kg

DRUGS (4)
  1. BLINDED CARIPRAZINE HCL 4.5MG CAP (TBD) [Suspect]
     Active Substance: CARIPRAZINE HYDROCHLORIDE
     Indication: SCHIZOPHRENIA
     Dosage: UNK
     Dates: start: 20191220, end: 20200617
  2. PLACEBO [Suspect]
     Active Substance: UNSPECIFIED INGREDIENT
     Indication: SCHIZOPHRENIA
     Dosage: UNK
     Dates: start: 20191220, end: 20200617
  3. ALBUTEROL. [Concomitant]
     Active Substance: ALBUTEROL
     Indication: ASTHMA
     Dosage: 90 ?G, PRN
     Route: 055
     Dates: start: 2017
  4. BLINDED CARIPRAZINE HCL 3MG CAP (TBD) [Suspect]
     Active Substance: CARIPRAZINE HYDROCHLORIDE
     Indication: SCHIZOPHRENIA
     Dosage: UNK
     Dates: start: 20191220, end: 20200617

REACTIONS (2)
  - Cataract nuclear [Not Recovered/Not Resolved]
  - Corneal scar [Not Recovered/Not Resolved]

NARRATIVE: CASE EVENT DATE: 20200625
